FAERS Safety Report 7119165-6 (Version None)
Quarter: 2010Q4

REPORT INFORMATION
  Report Type: 
  Country: None (occurrence: None)
  Receive Date: 20101123
  Receipt Date: 20101117
  Transmission Date: 20110411
  Serious: Yes (Other)
  Sender: FDA-Public Use
  Company Number: BR-SANOFI-AVENTIS-2010SA033808

PATIENT
  Sex: Male
  Weight: 73 kg

DRUGS (8)
  1. LANTUS [Suspect]
     Route: 058
     Dates: start: 20050101, end: 20100601
  2. SOLOSTAR [Suspect]
     Indication: TYPE 1 DIABETES MELLITUS
     Route: 058
     Dates: start: 20050101, end: 20100601
  3. LANTUS [Suspect]
     Route: 058
     Dates: start: 20100601
  4. AUTOPEN 24 [Suspect]
     Dates: start: 20100607, end: 20100608
  5. NOVORAPID [Concomitant]
     Indication: TYPE 1 DIABETES MELLITUS
     Dosage: BETWEEN 4 AND 8IUS ACCORDING TO CARBOHYDRATE COUNTING
     Route: 058
     Dates: start: 20040101
  6. PERINDOPRIL ERBUMINE [Concomitant]
     Indication: BLOOD PRESSURE
  7. SIMVASTATIN [Concomitant]
     Route: 048
  8. SOMALGIN [Concomitant]

REACTIONS (2)
  - HYPERGLYCAEMIA [None]
  - LYMPHOMA [None]
